FAERS Safety Report 7530444-0 (Version None)
Quarter: 2011Q2

REPORT INFORMATION
  Report Type: 
  Country: None (occurrence: None)
  Receive Date: 20110607
  Receipt Date: 20110524
  Transmission Date: 20111010
  Serious: Yes (Other)
  Sender: FDA-Public Use
  Company Number: GR-JNJFOC-20110511659

PATIENT

DRUGS (3)
  1. INFLIXIMAB, RECOMBINANT [Suspect]
     Indication: COLITIS ULCERATIVE
     Dosage: ADDITIONAL INDUCTION DOSES AT WEEK 2 AND 6
     Route: 042
  2. INFLIXIMAB, RECOMBINANT [Suspect]
     Dosage: SINGLE DOSE
     Route: 042
  3. INFLIXIMAB, RECOMBINANT [Suspect]
     Route: 042

REACTIONS (1)
  - PERICARDITIS [None]
